FAERS Safety Report 8553710-9 (Version None)
Quarter: 2012Q3

REPORT INFORMATION
  Report Type: 
  Country: None (occurrence: None)
  Receive Date: 20120731
  Receipt Date: 20120725
  Transmission Date: 20120928
  Serious: Yes (Hospitalization)
  Sender: FDA-Public Use
  Company Number: BE-PFIZER INC-2012181521

PATIENT
  Age: 58 Year
  Sex: Male
  Weight: 86 kg

DRUGS (7)
  1. TESTOSTERONE PHENYL PROPIONATE INJ [Concomitant]
     Indication: BLOOD FOLLICLE STIMULATING HORMONE
  2. GENOTROPIN [Suspect]
     Dosage: 0.4 MG,  7/WK
     Route: 058
     Dates: start: 20031212
  3. PRAZEPAM [Concomitant]
     Indication: ANXIETY
     Dosage: UNK
     Dates: start: 20070104
  4. LEVOTHYROXINE SODIUM [Concomitant]
     Indication: BLOOD THYROID STIMULATING HORMONE
     Dosage: UNK
     Dates: start: 19820715
  5. TESTOSTERONE PHENYL PROPIONATE INJ [Concomitant]
     Indication: BLOOD LUTEINISING HORMONE
     Dosage: UNK
     Dates: start: 19820715
  6. PARLODEL [Concomitant]
     Indication: HYPERPROLACTINAEMIA
     Dosage: UNK
     Dates: start: 20020715
  7. HYDROCORTISONE [Concomitant]
     Indication: BLOOD CORTICOTROPHIN
     Dosage: UNK
     Dates: start: 20020715

REACTIONS (2)
  - DEPRESSION [None]
  - PULMONARY EMBOLISM [None]
